FAERS Safety Report 9445129 (Version 2)
Quarter: 2013Q3

REPORT INFORMATION
  Report Type: Spontaneous
  Country: US (occurrence: US)
  Receive Date: 20130807
  Receipt Date: 20130829
  Transmission Date: 20140515
  Serious: Yes (Death)
  Sender: FDA-Public Use
  Company Number: US-CELGENEUS-163-21880-13080400

PATIENT
  Age: 71 Year
  Sex: Male

DRUGS (6)
  1. REVLIMID [Suspect]
     Indication: PLASMA CELL MYELOMA
     Dosage: 10 MILLIGRAM
     Route: 048
     Dates: start: 20130610, end: 20130701
  2. FUROSEMIDE [Concomitant]
     Indication: OEDEMA PERIPHERAL
     Route: 065
  3. METOPROLOL [Concomitant]
     Indication: HYPERTENSION
     Route: 065
  4. KCL [Concomitant]
     Indication: HYPOPHOSPHATAEMIA
     Route: 065
  5. SIMVASTATIN [Concomitant]
     Indication: HYPERLIPIDAEMIA
     Route: 065
  6. DEXAMETHASONE [Concomitant]
     Indication: PLASMA CELL MYELOMA
     Route: 065
     Dates: start: 201302, end: 20130701

REACTIONS (1)
  - Plasma cell myeloma [Fatal]
